FAERS Safety Report 24178593 (Version 1)
Quarter: 2024Q3

REPORT INFORMATION
  Report Type: Spontaneous
  Country: CA (occurrence: CA)
  Receive Date: 20240806
  Receipt Date: 20240806
  Transmission Date: 20241016
  Serious: Yes (Other)
  Sender: CELLTRION
  Company Number: CA-PFIZER INC-202400061461

PATIENT

DRUGS (7)
  1. INFLECTRA [Suspect]
     Active Substance: INFLIXIMAB-DYYB
     Indication: Colitis ulcerative
     Dosage: 400 MG, INDUCTION WEEK 0, 2, 6 THEN MAINTENANCE EVERY 8 WEEKS
     Route: 042
     Dates: start: 20231201
  2. INFLECTRA [Suspect]
     Active Substance: INFLIXIMAB-DYYB
     Dosage: 400 MG, INDUCTION WEEK 0, 2, 6 THEN MAINTENANCE EVERY 8 WEEKS
     Route: 042
     Dates: start: 20240112
  3. INFLECTRA [Suspect]
     Active Substance: INFLIXIMAB-DYYB
     Dosage: 400 MG, EVERY 8 WEEKS, INDUCTION WEEK 0, 2, 6 THEN MAINTENANCE EVERY 8 WEEKS
     Route: 042
     Dates: start: 20240308
  4. INFLECTRA [Suspect]
     Active Substance: INFLIXIMAB-DYYB
     Dosage: 10 MG/KG, EVERY 4 WEEK
     Route: 042
     Dates: start: 20240405
  5. INFLECTRA [Suspect]
     Active Substance: INFLIXIMAB-DYYB
     Dosage: 10 MG/KG, EVERY 4 WEEK
     Route: 042
     Dates: start: 20240627
  6. INFLECTRA [Suspect]
     Active Substance: INFLIXIMAB-DYYB
     Dosage: 10 MG/KG, EVERY 4 WEEK
     Route: 042
     Dates: start: 20240726
  7. PREDNISONE [Concomitant]
     Active Substance: PREDNISONE
     Dosage: 1 DF

REACTIONS (4)
  - Intestinal polyp [Unknown]
  - Drug level decreased [Not Recovered/Not Resolved]
  - Off label use [Unknown]
  - Condition aggravated [Not Recovered/Not Resolved]

NARRATIVE: CASE EVENT DATE: 20240101
